FAERS Safety Report 20142602 (Version 1)
Quarter: 2021Q4

REPORT INFORMATION
  Report Type: Other
  Country: US (occurrence: None)
  Receive Date: 20211202
  Receipt Date: 20211202
  Transmission Date: 20220303
  Serious: Yes (Other)
  Sender: FDA-Public Use
  Company Number: US-ROCHE-2771441

PATIENT
  Age: 23 Year
  Sex: Male

DRUGS (9)
  1. DIAZEPAM [Suspect]
     Active Substance: DIAZEPAM
     Indication: Product used for unknown indication
     Dosage: FOR DAY 1.
     Route: 065
  2. DIAZEPAM [Suspect]
     Active Substance: DIAZEPAM
     Dosage: FOR DAYS 2-3.
     Route: 065
  3. DIAZEPAM [Suspect]
     Active Substance: DIAZEPAM
     Route: 065
  4. CLONAZEPAM [Suspect]
     Active Substance: CLONAZEPAM
     Indication: Product used for unknown indication
     Dosage: 10-12 MG PER DAY.
     Route: 045
  5. ALPRAZOLAM [Suspect]
     Active Substance: ALPRAZOLAM
     Indication: Product used for unknown indication
     Route: 045
  6. HEROIN [Concomitant]
     Active Substance: DIAMORPHINE
  7. FENTANYL [Concomitant]
     Active Substance: FENTANYL
  8. BUPRENORPHINE [Concomitant]
     Active Substance: BUPRENORPHINE
     Indication: Drug use disorder
  9. NALOXONE [Concomitant]
     Active Substance: NALOXONE
     Indication: Drug use disorder

REACTIONS (2)
  - Drug abuse [Unknown]
  - Drug withdrawal syndrome [Recovering/Resolving]
